FAERS Safety Report 7820656-0 (Version None)
Quarter: 2011Q4

REPORT INFORMATION
  Report Type: 
  Country: None (occurrence: None)
  Receive Date: 20111018
  Receipt Date: 20111003
  Transmission Date: 20120403
  Serious: Yes (Hospitalization)
  Sender: FDA-Public Use
  Company Number: US-WATSON-2011-15808

PATIENT
  Sex: Male
  Weight: 65.397 kg

DRUGS (15)
  1. MULTIVITAMIN                       /00097801/ [Concomitant]
     Indication: VITAMIN SUPPLEMENTATION
     Dosage: 1 IN 1 D
     Route: 048
  2. OXYCODONE HCL [Concomitant]
     Indication: PAIN
     Dosage: 15 MG, UNKNOWN
     Route: 048
     Dates: start: 20110304
  3. ALLOPURINOL [Concomitant]
     Indication: GOUT
     Dosage: 50 MG, DAILY
     Route: 048
  4. AMLODIPINE [Concomitant]
     Indication: CORONARY ARTERY DISEASE
     Dosage: 5 MG, DAILY
     Route: 048
  5. BRIMONIDINE TARTRATE [Concomitant]
     Indication: GOUT
     Dosage: 0.15%, DAILY
     Route: 065
  6. ATENOLOL [Concomitant]
     Indication: HYPERTENSION
     Dosage: 25 MG, DAILY
     Route: 048
  7. SENOKOT [Concomitant]
     Indication: CONSTIPATION
     Dosage: 8.6 - 50 MG, BID
     Route: 048
     Dates: start: 20110329
  8. PREDNISONE [Suspect]
     Indication: PRODUCT USED FOR UNKNOWN INDICATION
     Dosage: UNK
     Route: 065
  9. CUSTIRSEN [Suspect]
     Indication: PROSTATE CANCER
     Dosage: 640 MG, 1/WEEK
     Route: 042
     Dates: start: 20110801
  10. DOCETAXEL [Suspect]
     Indication: PROSTATE CANCER
     Dosage: 75 MG/M2, EVERY 21 DAYS
     Route: 042
     Dates: start: 20110808
  11. LEUPROLIDE ACETATE [Concomitant]
     Indication: PROSTATE CANCER
     Dosage: 30 MG
     Route: 065
     Dates: start: 20110107
  12. ENALAPRIL MALEATE [Concomitant]
     Indication: HYPERTENSION
     Dosage: 5 MG, DAILY
     Route: 048
  13. MORPHINE [Concomitant]
     Indication: PAIN
     Dosage: 30 MG, Q8H
     Route: 048
     Dates: start: 20110331
  14. GLUCOSAMINE [Concomitant]
     Indication: SUPPLEMENTATION THERAPY
     Dosage: 1 IN 1 D
     Route: 048
  15. BIMATOPROST [Concomitant]
     Indication: GLAUCOMA
     Dosage: 0.3 %, DAILY
     Route: 065

REACTIONS (3)
  - FEBRILE NEUTROPENIA [None]
  - GASTROINTESTINAL HAEMORRHAGE [None]
  - HAEMATOCHEZIA [None]
